FAERS Safety Report 7127161-8 (Version None)
Quarter: 2010Q4

REPORT INFORMATION
  Report Type: 
  Country: None (occurrence: None)
  Receive Date: 20101129
  Receipt Date: 20100304
  Transmission Date: 20110411
  Serious: No
  Sender: FDA-Public Use
  Company Number: US-PFIZER INC-2010028659

PATIENT
  Sex: Male
  Weight: 80.7 kg

DRUGS (5)
  1. VIAGRA [Suspect]
     Indication: ERECTILE DYSFUNCTION
     Dosage: 50 MG, AS NEEDED
     Route: 048
     Dates: start: 20100201
  2. COZAAR [Concomitant]
     Indication: HYPERTENSION
     Dosage: 40 MG, 1X/DAY DAILY DOSE: 40 MG
     Route: 048
  3. ZOCOR [Concomitant]
     Indication: BLOOD CHOLESTEROL INCREASED
     Dosage: 20 MG, 1X/DAY DAILY DOSE: 20 MG
     Route: 048
  4. ACETYLSALICYLIC ACID [Concomitant]
     Indication: BLOOD DISORDER
     Dosage: 325 MG, 1X/DAY DAILY DOSE: 325 MG
     Route: 048
  5. GEMFIBROZIL [Concomitant]
     Indication: BLOOD TRIGLYCERIDES
     Dosage: 600 MG, 1X/DAY DAILY DOSE: 600 MG

REACTIONS (1)
  - DRUG INEFFECTIVE [None]
